FAERS Safety Report 4700008-2 (Version None)
Quarter: 2005Q2

REPORT INFORMATION
  Report Type: 
  Country: None (occurrence: None)
  Receive Date: 20050623
  Receipt Date: 20050609
  Transmission Date: 20051028
  Serious: Yes (Hospitalization, Other)
  Sender: FDA-Public Use
  Company Number: 200412252BCC

PATIENT
  Age: 74 Year
  Sex: Male

DRUGS (6)
  1. ALEVE [Suspect]
     Indication: DEMENTIA ALZHEIMER'S TYPE
     Dosage: BID,ORAL
     Route: 048
     Dates: start: 20010905, end: 20040421
  2. ALEVE [Suspect]
     Indication: PROPHYLAXIS
     Dosage: BID,ORAL
     Route: 048
     Dates: start: 20010905, end: 20040421
  3. TAMSULOSIN [Concomitant]
  4. ACETAMINOPHEN [Concomitant]
  5. MULTI-VITAMIN [Concomitant]
  6. SAW PALMETTO [Concomitant]

REACTIONS (1)
  - ATRIAL FIBRILLATION [None]
